FAERS Safety Report 8301571-5 (Version None)
Quarter: 2012Q2

REPORT INFORMATION
  Report Type: 
  Country: None (occurrence: None)
  Receive Date: 20120420
  Receipt Date: 20120411
  Transmission Date: 20120825
  Serious: Yes (Other)
  Sender: FDA-Public Use
  Company Number: TR-JNJFOC-20120401535

PATIENT
  Sex: Female

DRUGS (2)
  1. REMICADE [Suspect]
     Indication: RHEUMATOID ARTHRITIS
     Dosage: SECOND INFUSION
     Route: 042
     Dates: start: 20120410
  2. REMICADE [Suspect]
     Route: 042
     Dates: start: 20120326

REACTIONS (5)
  - GINGIVAL SWELLING [None]
  - HYPOAESTHESIA [None]
  - DECREASED APPETITE [None]
  - HEADACHE [None]
  - SKIN EXFOLIATION [None]
